FAERS Safety Report 15612944 (Version 3)
Quarter: 2018Q4

REPORT INFORMATION
  Report Type: Spontaneous
  Country: SE (occurrence: SE)
  Receive Date: 20181113
  Receipt Date: 20181217
  Transmission Date: 20190205
  Serious: Yes (Hospitalization)
  Sender: FDA-Public Use
  Company Number: SE-PFIZER INC-2018459617

PATIENT
  Age: 67 Year
  Sex: Male

DRUGS (6)
  1. ERGENYL RETARD [VALPROATE SODIUM] [Suspect]
     Active Substance: VALPROATE SODIUM
     Indication: SCHIZOPHRENIA
     Dosage: 1 DF, DAILY
     Route: 048
  2. ERGENYL [Suspect]
     Active Substance: VALPROIC ACID
     Indication: PSYCHOTIC DISORDER
     Dosage: 500 MG, 1X/DAY
     Route: 048
  3. RISPERDAL [Suspect]
     Active Substance: RISPERIDONE
     Indication: PSYCHOTIC DISORDER
     Dosage: 1 DF, DAILY
     Route: 048
     Dates: end: 200909
  4. ZYPREXA [Suspect]
     Active Substance: OLANZAPINE
     Indication: SCHIZOPHRENIA
     Dosage: 1 DF, DAILY
     Route: 048
  5. DETRUSITOL [Suspect]
     Active Substance: TOLTERODINE TARTRATE
     Indication: NOCTURIA
     Dosage: UNK
     Route: 048
     Dates: end: 20090906
  6. SALURES [Concomitant]
     Active Substance: BENDROFLUMETHIAZIDE
     Route: 048

REACTIONS (4)
  - Parkinsonism [Not Recovered/Not Resolved]
  - Anaemia [Unknown]
  - Thrombocytopenia [Unknown]
  - Fall [Recovered/Resolved]

NARRATIVE: CASE EVENT DATE: 2009
